FAERS Safety Report 7811947-8 (Version None)
Quarter: 2011Q4

REPORT INFORMATION
  Report Type: 
  Country: None (occurrence: None)
  Receive Date: 20111013
  Receipt Date: 20111004
  Transmission Date: 20120403
  Serious: Yes (Hospitalization)
  Sender: FDA-Public Use
  Company Number: CA-ASTRAZENECA-2011SE14678

PATIENT
  Age: 82 Year
  Sex: Male
  Weight: 54 kg

DRUGS (3)
  1. ATIVAN [Concomitant]
  2. PERCOCET [Concomitant]
  3. ZOLADEX [Suspect]
     Indication: PROSTATE CANCER
     Route: 058
     Dates: start: 20090403

REACTIONS (2)
  - OSTEOARTHRITIS [None]
  - HIP ARTHROPLASTY [None]
